FAERS Safety Report 6525455-8 (Version None)
Quarter: 2009Q4

REPORT INFORMATION
  Report Type: 
  Country: None (occurrence: None)
  Receive Date: 20091214
  Receipt Date: 20090210
  Transmission Date: 20100525
  Serious: Yes (Other)
  Sender: FDA-Public Use
  Company Number: 613901

PATIENT
  Age: 49 Year
  Sex: Female

DRUGS (4)
  1. PEGASYS [Suspect]
     Indication: HEPATITIS C
     Dosage: 180 UG 1 PER WEEK
     Dates: start: 20090210
  2. RIBAVIRIN [Suspect]
     Indication: HEPATITIS C
     Dosage: 1000 MG DAILY
     Dates: start: 20090210
  3. LYRICA [Concomitant]
  4. SUMATRIPTAN SUCCINATE (IMITREX) [Concomitant]

REACTIONS (15)
  - AMNESIA [None]
  - DEPRESSION [None]
  - DYSPNOEA [None]
  - FAECES DISCOLOURED [None]
  - HEPATIC PAIN [None]
  - IRRITABILITY [None]
  - MALAISE [None]
  - MIGRAINE [None]
  - NAUSEA [None]
  - PYREXIA [None]
  - RED BLOOD CELL COUNT DECREASED [None]
  - SKIN ULCER [None]
  - TOOTH EXTRACTION [None]
  - TOOTHACHE [None]
  - WHITE BLOOD CELL COUNT DECREASED [None]
